FAERS Safety Report 4463732-5 (Version None)
Quarter: 2004Q3

REPORT INFORMATION
  Report Type: 
  Country: None (occurrence: None)
  Receive Date: 20040929
  Receipt Date: 20040913
  Transmission Date: 20050211
  Serious: Yes (Other)
  Sender: FDA-Public Use
  Company Number: GBS040915582

PATIENT
  Age: 70 Year
  Sex: Female

DRUGS (8)
  1. EVISTA [Suspect]
     Indication: OSTEOPOROSIS
     Dosage: 60 MG
     Dates: start: 20010301
  2. CALCIUM AND VITAMIN D [Concomitant]
  3. CALCITRIOL [Concomitant]
  4. SYMBICORT [Concomitant]
  5. PHARMATON [Concomitant]
  6. AESCULUS HIPPOCASTANUM [Concomitant]
  7. ZINC [Concomitant]
  8. MAGNESIUM (MAGNESIUM ASPARTATE) [Concomitant]

REACTIONS (5)
  - CONDITION AGGRAVATED [None]
  - DRUG EFFECT DECREASED [None]
  - PHARMACEUTICAL PRODUCT COMPLAINT [None]
  - SPINAL COMPRESSION FRACTURE [None]
  - STOOL ANALYSIS ABNORMAL [None]
